FAERS Safety Report 9220097 (Version 4)
Quarter: 2017Q3

REPORT INFORMATION
  Report Type: Report from Study
  Country: BR (occurrence: BR)
  Receive Date: 20130409
  Receipt Date: 20170927
  Transmission Date: 20171128
  Serious: Yes (Hospitalization, Other)
  Sender: FDA-Public Use
  Company Number: BR-ROCHE-1211785

PATIENT
  Sex: Female
  Weight: 102 kg

DRUGS (7)
  1. AMITRIPTYLINE [Concomitant]
     Active Substance: AMITRIPTYLINE
  2. METHOTREXATE. [Concomitant]
     Active Substance: METHOTREXATE
  3. MABTHERA [Suspect]
     Active Substance: RITUXIMAB
     Indication: RHEUMATOID ARTHRITIS
     Route: 042
     Dates: start: 20121218
  4. FOLIC ACID. [Concomitant]
     Active Substance: FOLIC ACID
  5. DIPYRONE [Concomitant]
     Active Substance: DIPYRONE
  6. LEFLUNOMIDE. [Concomitant]
     Active Substance: LEFLUNOMIDE
  7. ATENOLOL. [Concomitant]
     Active Substance: ATENOLOL
     Indication: HYPERTENSION

REACTIONS (13)
  - Pulmonary embolism [Recovered/Resolved]
  - Limb injury [Recovered/Resolved]
  - Somnolence [Recovered/Resolved]
  - Influenza [Recovered/Resolved]
  - Foot fracture [Recovered/Resolved]
  - Pulmonary thrombosis [Recovered/Resolved]
  - Urinary tract infection [Recovered/Resolved]
  - Fall [Unknown]
  - Decreased appetite [Recovered/Resolved]
  - Diabetes mellitus [Not Recovered/Not Resolved]
  - Pneumonia [Recovered/Resolved]
  - Ankle fracture [Unknown]
  - Pain in extremity [Recovered/Resolved]
